FAERS Safety Report 10227314 (Version 1)
Quarter: 2014Q2

REPORT INFORMATION
  Report Type: Spontaneous
  Country: FR (occurrence: FR)
  Receive Date: 20140610
  Receipt Date: 20140610
  Transmission Date: 20141212
  Serious: Yes (Other)
  Sender: FDA-Public Use
  Company Number: FR-ELI_LILLY_AND_COMPANY-FR201406000926

PATIENT
  Age: 80 Year
  Sex: Female
  Weight: 22 kg

DRUGS (1)
  1. FORSTEO [Suspect]
     Indication: OSTEOPOROSIS
     Dosage: 1 DF, QD
     Route: 065
     Dates: start: 20110810, end: 201304

REACTIONS (2)
  - Overweight [Not Recovered/Not Resolved]
  - Pain [Unknown]
